FAERS Safety Report 5909760-1 (Version None)
Quarter: 2008Q4

REPORT INFORMATION
  Report Type: 
  Country: None (occurrence: None)
  Receive Date: 20081003
  Receipt Date: 20081003
  Transmission Date: 20090506
  Serious: Yes (Disabling)
  Sender: FDA-Public Use
  Company Number: None

PATIENT
  Sex: Female

DRUGS (1)
  1. AMBIEN [Suspect]
     Indication: INSOMNIA
     Dosage: 10? MG EVERY NIGHT

REACTIONS (5)
  - ABNORMAL SLEEP-RELATED EVENT [None]
  - CLAVICLE FRACTURE [None]
  - FALL [None]
  - HALLUCINATION, VISUAL [None]
  - SOMNAMBULISM [None]
